FAERS Safety Report 5848427-5 (Version None)
Quarter: 2008Q3

REPORT INFORMATION
  Report Type: 
  Country: None (occurrence: None)
  Receive Date: 20080818
  Receipt Date: 20080804
  Transmission Date: 20090109
  Serious: Yes (Other)
  Sender: FDA-Public Use
  Company Number: CA-ROCHE-580729

PATIENT
  Sex: Female

DRUGS (3)
  1. PEGASYS [Suspect]
     Indication: HEPATITIS C
     Dosage: AS PER PRODUCT MONOGRAM
     Route: 058
  2. INTERFERON ALFA-2A [Suspect]
     Indication: HEPATITIS C
     Route: 065
  3. RIBAVIRIN [Suspect]
     Indication: HEPATITIS C
     Dosage: ADMINISTERED AS PER PRODUCT MONOGRAM.
     Route: 048

REACTIONS (1)
  - SQUAMOUS CELL CARCINOMA OF THE CERVIX [None]
